FAERS Safety Report 24339012 (Version 1)
Quarter: 2024Q3

REPORT INFORMATION
  Report Type: Spontaneous
  Country: US (occurrence: US)
  Receive Date: 20240919
  Receipt Date: 20240919
  Transmission Date: 20241016
  Serious: No
  Sender: MERCK
  Company Number: US-009507513-2408USA009450

PATIENT
  Age: 71 Year
  Sex: Male

DRUGS (4)
  1. NOXAFIL [Suspect]
     Active Substance: POSACONAZOLE
     Indication: Protothecosis
     Dosage: UNK
  2. NOXAFIL [Suspect]
     Active Substance: POSACONAZOLE
     Dosage: 400 MILLIGRAM, BID
  3. NOXAFIL [Suspect]
     Active Substance: POSACONAZOLE
     Dosage: 300 MILLIGRAM, BID
  4. NOXAFIL [Suspect]
     Active Substance: POSACONAZOLE
     Dosage: 300 MILLIGRAM, QD

REACTIONS (1)
  - Product use in unapproved indication [Unknown]
